FAERS Safety Report 20217157 (Version 2)
Quarter: 2022Q1

REPORT INFORMATION
  Report Type: Spontaneous
  Country: FR (occurrence: FR)
  Receive Date: 20211222
  Receipt Date: 20220222
  Transmission Date: 20220424
  Serious: No
  Sender: FDA-Public Use
  Company Number: FR-SAMSUNG BIOEPIS-SB-2021-27912

PATIENT
  Age: 8 Month
  Sex: Female

DRUGS (5)
  1. ADALIMUMAB [Suspect]
     Active Substance: ADALIMUMAB
     Indication: Acute febrile neutrophilic dermatosis
     Dosage: UNK
     Route: 065
  2. ANAKINRA [Concomitant]
     Active Substance: ANAKINRA
     Indication: Acute febrile neutrophilic dermatosis
     Dosage: UNK
     Route: 065
  3. CYCLOPHOSPHAMIDE [Concomitant]
     Active Substance: CYCLOPHOSPHAMIDE
     Indication: Acute febrile neutrophilic dermatosis
     Dosage: 1G/7.73M2
     Route: 065
  4. METHOTREXATE [Concomitant]
     Active Substance: METHOTREXATE
     Indication: Acute febrile neutrophilic dermatosis
     Dosage: UNK
     Route: 065
  5. IMMUNE GLOBULIN NOS [Concomitant]
     Active Substance: IMMUNE GLOBULIN NOS
     Indication: Acute febrile neutrophilic dermatosis
     Dosage: 1 MONTHLY
     Route: 042

REACTIONS (2)
  - Drug ineffective for unapproved indication [Unknown]
  - Off label use [Unknown]
